FAERS Safety Report 7056509-8 (Version None)
Quarter: 2010Q4

REPORT INFORMATION
  Report Type: 
  Country: None (occurrence: None)
  Receive Date: 20101021
  Receipt Date: 20101013
  Transmission Date: 20110411
  Serious: Yes (Other)
  Sender: FDA-Public Use
  Company Number: US-PFIZER INC-2010114322

PATIENT
  Sex: Female
  Weight: 56.236 kg

DRUGS (9)
  1. LIPITOR [Suspect]
     Indication: BLOOD CHOLESTEROL INCREASED
     Dosage: 10 MG, DAILY
     Route: 048
     Dates: start: 20100902, end: 20100901
  2. NEXIUM [Concomitant]
     Indication: GASTRIC DISORDER
     Dosage: 40 MG, 1X/DAY
  3. NEXIUM [Concomitant]
     Indication: GASTROOESOPHAGEAL REFLUX DISEASE
  4. ACETYLSALICYLIC ACID [Concomitant]
     Dosage: 162 MG, 1X/DAY
  5. AMARYL [Concomitant]
     Dosage: 2 MG, 1X/DAY
  6. OXAZEPAM [Concomitant]
     Dosage: 10 MG, AS NEEDED
  7. FLEXERIL [Concomitant]
     Dosage: 10 MG, AS NEEDED
  8. ALBUTEROL [Concomitant]
     Dosage: UNK
     Route: 055
  9. QUINAPRIL [Concomitant]
     Dosage: 10 MG, 1X/DAY

REACTIONS (4)
  - ASTHENIA [None]
  - DRUG INTOLERANCE [None]
  - MYALGIA [None]
  - PAIN [None]
